FAERS Safety Report 7630921-8 (Version None)
Quarter: 2011Q3

REPORT INFORMATION
  Report Type: 
  Country: None (occurrence: None)
  Receive Date: 20110725
  Receipt Date: 20110713
  Transmission Date: 20111222
  Serious: Yes (Life-Threatening, Hospitalization)
  Sender: FDA-Public Use
  Company Number: JP-AMGEN-US390698

PATIENT
  Age: 52 Year
  Sex: Female
  Weight: 46 kg

DRUGS (16)
  1. PREDNISOLONE [Concomitant]
     Dosage: 5 MG, QD
     Dates: start: 20080502
  2. ALENDRONATE SODIUM [Concomitant]
     Dosage: 35 MG, QWK
     Route: 048
     Dates: start: 20080207, end: 20091005
  3. PREDNISOLONE [Concomitant]
     Dosage: 1 MG, QD
     Route: 048
     Dates: start: 20081017, end: 20081225
  4. METHOTREXATE [Suspect]
     Dosage: 6 MG, QWK
     Dates: start: 20090417, end: 20091003
  5. CELECOXIB [Concomitant]
     Dosage: 400 MG, QD
     Route: 048
     Dates: start: 20080207, end: 20080515
  6. ENBREL [Suspect]
     Dosage: 25 MG, QWK
     Route: 058
     Dates: start: 20080501, end: 20091002
  7. PREDNISOLONE [Concomitant]
     Dosage: 5 MG, QD
     Dates: start: 20050101
  8. CELECOXIB [Concomitant]
     Dosage: 200 MG, QD
     Route: 048
     Dates: start: 20080515, end: 20080606
  9. ENBREL [Suspect]
     Indication: RHEUMATOID ARTHRITIS
     Dosage: 25 MG, QWK
     Route: 058
     Dates: start: 20080502, end: 20080711
  10. PREDNISOLONE [Concomitant]
     Dosage: 3 MG, QD
     Route: 048
     Dates: start: 20080627, end: 20080822
  11. METHOTREXATE [Suspect]
     Dosage: 8 MG, QWK
     Route: 048
     Dates: start: 20080207, end: 20080515
  12. PREDNISOLONE [Concomitant]
     Dosage: 5 MG, QD
     Dates: start: 20080207
  13. METHOTREXATE [Suspect]
     Dosage: 6 MG, QWK
     Route: 048
     Dates: start: 20080515, end: 20090416
  14. PREDNISOLONE [Concomitant]
     Dosage: 4 MG, QD
     Route: 048
     Dates: start: 20080530, end: 20080627
  15. PREDNISOLONE [Concomitant]
     Dosage: 2 MG, QD
     Route: 048
     Dates: start: 20080822, end: 20081007
  16. CELECOXIB [Concomitant]
     Dosage: 100 MG, QD
     Route: 048
     Dates: start: 20080606, end: 20091005

REACTIONS (3)
  - LYMPHOPROLIFERATIVE DISORDER [None]
  - COUGH [None]
  - T-CELL LYMPHOMA STAGE IV [None]
